FAERS Safety Report 11826493 (Version 1)
Quarter: 2015Q4

REPORT INFORMATION
  Report Type: Spontaneous
  Country: RO (occurrence: RO)
  Receive Date: 20151211
  Receipt Date: 20151211
  Transmission Date: 20160305
  Serious: Yes (Death, Other)
  Sender: FDA-Public Use
  Company Number: RO-MYLANLABS-2015M1044253

PATIENT

DRUGS (4)
  1. ALEMTUZUMAB [Suspect]
     Active Substance: ALEMTUZUMAB
     Indication: CHRONIC LYMPHOCYTIC LEUKAEMIA
     Route: 065
  2. LAMIVUDINE. [Suspect]
     Active Substance: LAMIVUDINE
     Indication: HEPATITIS B
     Route: 065
  3. FLUDARABINE [Suspect]
     Active Substance: FLUDARABINE PHOSPHATE
     Indication: CHRONIC LYMPHOCYTIC LEUKAEMIA
     Dosage: CYCLIC; RECEIVED 8CYCLES FOLLOWED BY 5 CYCLES DUE TO RELAPSE
     Route: 065
  4. CYCLOPHOSPHAMIDE. [Suspect]
     Active Substance: CYCLOPHOSPHAMIDE
     Indication: CHRONIC LYMPHOCYTIC LEUKAEMIA
     Dosage: CYCLIC; RECEIVED 8CYCLES FOLLOWED BY 5 CYCLES DUE TO RELAPSE
     Route: 065

REACTIONS (3)
  - Multi-organ failure [Fatal]
  - Acute lymphocytic leukaemia [Unknown]
  - Sepsis [Fatal]
